FAERS Safety Report 24367956 (Version 2)
Quarter: 2024Q4

REPORT INFORMATION
  Report Type: Report from Study
  Country: US (occurrence: US)
  Receive Date: 20240926
  Receipt Date: 20241023
  Transmission Date: 20250115
  Serious: Yes (Death, Other)
  Sender: JAZZ
  Company Number: US-JAZZ PHARMACEUTICALS-2024-US-016261

PATIENT
  Age: 53 Year
  Sex: Male

DRUGS (1)
  1. EPIDIOLEX [Suspect]
     Active Substance: CANNABIDIOL
     Indication: Lennox-Gastaut syndrome
     Dosage: 4.7 MILLILITER, BID
     Route: 048
     Dates: start: 201906

REACTIONS (1)
  - Death [Fatal]

NARRATIVE: CASE EVENT DATE: 20240916
